FAERS Safety Report 8999123 (Version 2)
Quarter: 2013Q1

REPORT INFORMATION
  Report Type: Spontaneous
  Country: IL (occurrence: IL)
  Receive Date: 20130103
  Receipt Date: 20130125
  Transmission Date: 20140127
  Serious: Yes (Other)
  Sender: FDA-Public Use
  Company Number: IL-ELI_LILLY_AND_COMPANY-IL201212008384

PATIENT
  Age: 69 Year
  Sex: Male

DRUGS (5)
  1. CIALIS [Suspect]
     Indication: BENIGN PROSTATIC HYPERPLASIA
     Dosage: 20 MG, UNK
     Dates: start: 20121105
  2. CIALIS [Suspect]
     Dosage: 5 MG, UNK
  3. EZETROL [Concomitant]
  4. NORVASC [Concomitant]
  5. MICROPIRIN [Concomitant]

REACTIONS (1)
  - Visual impairment [Recovered/Resolved]
